FAERS Safety Report 5812073-X (Version None)
Quarter: 2008Q3

REPORT INFORMATION
  Report Type: 
  Country: None (occurrence: None)
  Receive Date: 20080716
  Receipt Date: 20080627
  Transmission Date: 20090109
  Serious: No
  Sender: FDA-Public Use
  Company Number: US-BOEHRINGER INGELHEIM GMBH, GERMANY-2008-BP-10025BP

PATIENT
  Age: 5 Year
  Sex: Male

DRUGS (1)
  1. CATAPRES-TTS-1 [Suspect]
     Indication: DIARRHOEA
     Route: 061
     Dates: start: 20070601

REACTIONS (1)
  - APPLICATION SITE IRRITATION [None]
